FAERS Safety Report 6238143-2 (Version None)
Quarter: 2009Q2

REPORT INFORMATION
  Report Type: 
  Country: None (occurrence: None)
  Receive Date: 20090617
  Receipt Date: 20090617
  Transmission Date: 20091009
  Serious: No
  Sender: FDA-Public Use
  Company Number: None

PATIENT
  Age: 25 Year
  Sex: Male
  Weight: 79.3795 kg

DRUGS (2)
  1. LANTUS [Suspect]
     Indication: TYPE 1 DIABETES MELLITUS
     Dosage: 41 UNITS 1 TIME PER DAY SQ
     Route: 058
     Dates: start: 20030114, end: 20061231
  2. LISPRO -HUMALOG- INSULIN [Concomitant]

REACTIONS (3)
  - ERYTHEMA [None]
  - INJECTION SITE ATROPHY [None]
  - TENDERNESS [None]
